FAERS Safety Report 15952247 (Version 1)
Quarter: 2019Q1

REPORT INFORMATION
  Report Type: Spontaneous
  Country: US (occurrence: US)
  Receive Date: 20190212
  Receipt Date: 20190212
  Transmission Date: 20190417
  Serious: No
  Sender: FDA-Public Use
  Company Number: US-SA-2019SA034851

PATIENT
  Age: 71 Year
  Sex: Female

DRUGS (1)
  1. PRALUENT [Suspect]
     Active Substance: ALIROCUMAB
     Indication: BLOOD CHOLESTEROL INCREASED
     Dosage: 150 MG, QOW
     Route: 058
     Dates: start: 20181231, end: 20190128

REACTIONS (6)
  - Injection site dryness [Recovering/Resolving]
  - Injection site erythema [Not Recovered/Not Resolved]
  - Injection site vesicles [Recovered/Resolved]
  - Injection site reaction [Not Recovered/Not Resolved]
  - Injection site discolouration [Recovering/Resolving]
  - Injection site pruritus [Recovered/Resolved]

NARRATIVE: CASE EVENT DATE: 201901
